FAERS Safety Report 25535710 (Version 1)
Quarter: 2025Q3

REPORT INFORMATION
  Report Type: Spontaneous
  Country: US (occurrence: US)
  Receive Date: 20250709
  Receipt Date: 20250709
  Transmission Date: 20251021
  Serious: No
  Sender: FOUNDATION CONSUMER HEALTHCARE, LLC
  Company Number: US-FOUNDATIONCONSUMERHC-2025-US-017448

PATIENT
  Age: 28 Year
  Sex: Female
  Weight: 49.9 kg

DRUGS (6)
  1. AFTERA [Suspect]
     Active Substance: LEVONORGESTREL
     Indication: Post coital contraception
     Route: 048
     Dates: start: 20250408, end: 20250408
  2. THC [Concomitant]
  3. CANNABIDIOL [Concomitant]
     Active Substance: CANNABIDIOL
  4. CBN [Concomitant]
  5. TYLENOL [Concomitant]
     Active Substance: ACETAMINOPHEN
  6. ALEVE [Concomitant]
     Active Substance: NAPROXEN SODIUM

REACTIONS (3)
  - Nausea [Not Recovered/Not Resolved]
  - Vomiting [Recovered/Resolved]
  - Throat irritation [Not Recovered/Not Resolved]

NARRATIVE: CASE EVENT DATE: 20250408
